FAERS Safety Report 6641477-0 (Version None)
Quarter: 2010Q1

REPORT INFORMATION
  Report Type: 
  Country: None (occurrence: None)
  Receive Date: 20100318
  Receipt Date: 20100316
  Transmission Date: 20100710
  Serious: Yes (Hospitalization)
  Sender: FDA-Public Use
  Company Number: FR-MERCK-1003FRA00053

PATIENT
  Age: 49 Year
  Sex: Female

DRUGS (4)
  1. JANUVIA [Suspect]
     Indication: TYPE 2 DIABETES MELLITUS
     Route: 048
     Dates: end: 20100105
  2. IBUPROFEN [Suspect]
     Route: 048
     Dates: start: 20091231, end: 20100101
  3. METFORMIN [Suspect]
     Route: 048
     Dates: end: 20100105
  4. AMOXICILLIN [Suspect]
     Route: 048
     Dates: start: 20091223

REACTIONS (2)
  - RENAL FAILURE ACUTE [None]
  - TUBULOINTERSTITIAL NEPHRITIS [None]
